FAERS Safety Report 8513166-9 (Version None)
Quarter: 2012Q3

REPORT INFORMATION
  Report Type: 
  Country: None (occurrence: None)
  Receive Date: 20120716
  Receipt Date: 20120710
  Transmission Date: 20120928
  Serious: Yes (Other)
  Sender: FDA-Public Use
  Company Number: NL-PFIZER INC-2012164955

PATIENT
  Sex: Female

DRUGS (7)
  1. PERSANTINE [Concomitant]
     Dosage: 200 MG, 2X/DAY
  2. FOLIC ACID [Concomitant]
     Dosage: 5 MG, 2X/WEEK
  3. LIPITOR [Suspect]
     Dosage: 40 MG, UNK
     Dates: start: 19970101
  4. NEXIUM [Concomitant]
     Dosage: UNK
  5. ESOMEPRAZOLE [Concomitant]
     Dosage: 40 MG, 1X/DAY
  6. METOPROLOL [Concomitant]
     Dosage: 200 MG, 1X/DAY
  7. ACETYLSALICYLIC ACID [Concomitant]
     Dosage: 80 MG, 1X/DAY

REACTIONS (6)
  - CEREBROVASCULAR ACCIDENT [None]
  - EMPHYSEMA [None]
  - DYSPHAGIA [None]
  - TRANSIENT ISCHAEMIC ATTACK [None]
  - GOITRE [None]
  - ASTHMA [None]
